FAERS Safety Report 5243677-3 (Version None)
Quarter: 2007Q1

REPORT INFORMATION
  Report Type: 
  Country: None (occurrence: None)
  Receive Date: 20070222
  Receipt Date: 20070212
  Transmission Date: 20070707
  Serious: Yes (Hospitalization, Other)
  Sender: FDA-Public Use
  Company Number: US-JNJFOC-20070202956

PATIENT
  Age: 4 Decade
  Sex: Male

DRUGS (3)
  1. RISPERDAL CONSTA [Suspect]
     Indication: SCHIZOPHRENIA
     Route: 030
  2. RISPERDAL [Suspect]
     Indication: SCHIZOPHRENIA
     Route: 048
  3. DEPAKOTE [Concomitant]
     Indication: SCHIZOPHRENIA

REACTIONS (2)
  - SCHIZOPHRENIA [None]
  - WHITE BLOOD CELL COUNT DECREASED [None]
